FAERS Safety Report 7554180-X (Version None)
Quarter: 2011Q2

REPORT INFORMATION
  Report Type: 
  Country: None (occurrence: None)
  Receive Date: 20110617
  Receipt Date: 20110607
  Transmission Date: 20111010
  Serious: Yes (Hospitalization)
  Sender: FDA-Public Use
  Company Number: PHHY2011KR50213

PATIENT
  Age: 77 Year
  Sex: Female

DRUGS (6)
  1. LORAZEPAM [Concomitant]
     Dosage: 2 MG/DAY
  2. ONDANSETRON [Suspect]
     Indication: ANTIEMETIC SUPPORTIVE CARE
     Dates: start: 20100216
  3. RADIOTHERAPY [Suspect]
     Dosage: 4500 GY, WHOLE-PELVIS
  4. RADIOTHERAPY [Suspect]
     Dosage: 540 GY, TUMOR BED BOOST
  5. FLUOROURACIL [Suspect]
     Indication: ADENOCARCINOMA
     Dosage: 790 MG, (500 MG/M2) FOR 5 CONSECUTIVE DAYS AT 3-WEEK INTERVALS.
     Dates: start: 20100209, end: 20100322
  6. LEUCOVORIN CALCIUM [Suspect]
     Indication: ADENOCARCINOMA
     Dosage: 32 MG, (20 MG/M2) FOR 5 CONSECUTIVE DAYS AT 3-WEEK INTERVALS.

REACTIONS (18)
  - ABNORMAL BEHAVIOUR [None]
  - DYSPHONIA [None]
  - INSOMNIA [None]
  - AFFECT LABILITY [None]
  - DISTURBANCE IN ATTENTION [None]
  - PSYCHOMOTOR HYPERACTIVITY [None]
  - ANAEMIA [None]
  - LOGORRHOEA [None]
  - GRANDIOSITY [None]
  - MANIA [None]
  - ELEVATED MOOD [None]
  - ANXIETY [None]
  - CEREBRAL INFARCTION [None]
  - CEREBRAL ISCHAEMIA [None]
  - IMPULSIVE BEHAVIOUR [None]
  - EUPHORIC MOOD [None]
  - DELUSION OF GRANDEUR [None]
  - PRESSURE OF SPEECH [None]
